FAERS Safety Report 23446447 (Version 1)
Quarter: 2024Q1

REPORT INFORMATION
  Report Type: Spontaneous
  Country: US (occurrence: None)
  Receive Date: 20240125
  Receipt Date: 20240125
  Transmission Date: 20240410
  Serious: Yes (Other)
  Sender: FDA-Public Use
  Company Number: None

PATIENT
  Age: 37 Year
  Sex: Female

DRUGS (2)
  1. KESIMPTA [Suspect]
     Active Substance: OFATUMUMAB
     Indication: Multiple sclerosis
     Dosage: 20 MG EVERY MONTH SUBCUTANEOUS?
     Route: 058
     Dates: start: 20220208, end: 20240102
  2. KESIMPTA 20MG/0.4ML SENRDY PEN INJ [Concomitant]
     Dates: start: 20220208, end: 20240102

REACTIONS (2)
  - Infection [None]
  - Urinary tract infection [None]

NARRATIVE: CASE EVENT DATE: 20231201
